FAERS Safety Report 6676606-6 (Version None)
Quarter: 2010Q2

REPORT INFORMATION
  Report Type: 
  Country: None (occurrence: None)
  Receive Date: 20100412
  Receipt Date: 20100302
  Transmission Date: 20101027
  Serious: Yes (Other)
  Sender: FDA-Public Use
  Company Number: PHHY2010PT04861

PATIENT
  Sex: Female

DRUGS (9)
  1. ACLASTA [Suspect]
     Indication: OSTEOPOROSIS
     Dosage: YEARLY
     Dates: start: 20090420
  2. CALCIUM [Concomitant]
  3. ACE INHIBITORS AND DIURETICS [Concomitant]
  4. ZARATOR [Concomitant]
     Indication: DYSLIPIDAEMIA
     Dosage: 1 TABLET/DAY
     Dates: start: 20010101
  5. HYPERIUM [Concomitant]
     Indication: HYPERTENSION
     Dosage: 1 TABLET/DAY
     Dates: start: 20010101
  6. ISOPTIN [Concomitant]
     Indication: HYPERTENSION
     Dosage: 2 TABLET/ DAY
     Dates: start: 20010101
  7. ZANICOR [Concomitant]
     Indication: HYPERTENSION
     Dosage: 1 TABLET/ DAY
     Dates: start: 20010101
  8. COTAREG [Concomitant]
     Indication: HYPERTENSION
     Dosage: 1 TABLET/DAY
     Dates: start: 20080101
  9. SERETIDE [Concomitant]
     Indication: OBSESSIVE-COMPULSIVE PERSONALITY DISORDER
     Dosage: TWICE A DAY
     Dates: start: 20080101

REACTIONS (5)
  - BACK PAIN [None]
  - BLOOD PRESSURE DECREASED [None]
  - BLOOD UREA INCREASED [None]
  - FLANK PAIN [None]
  - NEPHROLITHIASIS [None]
